FAERS Safety Report 8337050-9 (Version None)
Quarter: 2012Q2

REPORT INFORMATION
  Report Type: 
  Country: None (occurrence: None)
  Receive Date: 20120504
  Receipt Date: 20100312
  Transmission Date: 20120825
  Serious: Yes (Death, Other)
  Sender: FDA-Public Use
  Company Number: US-BAYER-201016408NA

PATIENT
  Sex: Male
  Weight: 102 kg

DRUGS (39)
  1. ARICEPT [Concomitant]
     Dosage: 10 MG AT BEDTIME
     Route: 048
  2. SPIRONOLACTONE [Concomitant]
     Dosage: 25 MG ONCE A DAY
     Route: 048
  3. ASPIRIN [Concomitant]
     Dosage: 81MG
     Route: 048
  4. COUMADIN [Concomitant]
     Indication: ARTERIAL BYPASS OPERATION
     Dosage: UNK
     Dates: start: 20020101, end: 20020101
  5. PROCRIT [Concomitant]
     Indication: ANAEMIA
     Dosage: 20,000 UNITS TWICE A WEEK
     Route: 058
  6. FUROSEMIDE [Concomitant]
     Indication: BLOOD PRESSURE ABNORMAL
     Dosage: 40 MG TWICE A DAY
     Route: 048
  7. MAGNEVIST [Suspect]
     Dates: start: 20050607, end: 20050607
  8. OMNISCAN [Suspect]
     Indication: NUCLEAR MAGNETIC RESONANCE IMAGING
     Dates: start: 20030807, end: 20030807
  9. OMNISCAN [Suspect]
     Dates: start: 20040729, end: 20040729
  10. CARBIDOPA + LEVODOPA [Concomitant]
     Indication: PARKINSON'S DISEASE
     Dosage: 4 TABLETS FOUR TIMES A DAY
     Route: 048
  11. OMNISCAN [Suspect]
     Dates: start: 20041201, end: 20041201
  12. TOPROL-XL [Concomitant]
     Dosage: 12.5 MG FOUR TIMES A DAY
     Route: 048
  13. ZETIA [Concomitant]
     Dosage: 10 MG DAILY
     Route: 048
  14. TRAMADOL HCL [Concomitant]
     Indication: DIABETIC NEUROPATHY
     Dosage: TWO 50 MG TABLETS FOUR TIMES A DAY
     Route: 048
     Dates: start: 20050101
  15. MIRAPEX [Concomitant]
     Dosage: 1.5 MG THREE TIMES A DAY
  16. COREG [Concomitant]
     Indication: BLOOD PRESSURE ABNORMAL
     Dosage: 25 MG TWICE A DAY
     Route: 048
     Dates: start: 20040101
  17. CARBIDOPA + LEVODOPA [Concomitant]
     Dosage: FOUR TIMES A DAY
     Route: 048
  18. MAGNEVIST [Suspect]
  19. OMNISCAN [Suspect]
     Dates: start: 20050106, end: 20050106
  20. OMNISCAN [Suspect]
     Dosage: 40 ML, ONCE
     Route: 042
     Dates: start: 20060412, end: 20060412
  21. OMNISCAN [Suspect]
     Dates: start: 20060524, end: 20060524
  22. LISINOPRIL [Concomitant]
     Dosage: 10 MG DAILY
     Route: 048
  23. PROSCAR [Concomitant]
     Dosage: 5 MG
     Route: 048
  24. MAGNEVIST [Suspect]
     Indication: ANGIOGRAM
     Dates: start: 20030212, end: 20030212
  25. OMNISCAN [Suspect]
     Indication: ANGIOGRAM
     Dates: start: 20030922, end: 20030922
  26. PLETAL [Concomitant]
     Dosage: 50 MG TWICE A DAY
     Route: 048
  27. WELLBUTRIN [Concomitant]
     Dosage: 150 MG
     Route: 048
  28. AZILECT [Concomitant]
     Dosage: 1 MG DAILY
     Route: 048
  29. TRAZODONE HCL [Concomitant]
     Indication: DIABETIC NEUROPATHY
     Dosage: 25 MG AT BEDTIME
     Route: 048
     Dates: start: 20080101
  30. GABAPENTIN [Concomitant]
     Indication: DIABETIC NEUROPATHY
     Dosage: 300 MG FOUR TIMES A DAY
     Route: 048
     Dates: start: 20070101
  31. COZAAR [Concomitant]
     Dosage: 100MG DAILY
     Route: 048
  32. EPOGEN [Concomitant]
     Dosage: 10,000 UNITS WEEKLY
     Route: 058
     Dates: start: 20030101, end: 20030101
  33. SEROQUEL [Concomitant]
     Indication: PARKINSON'S DISEASE
     Dosage: TWO 25 MG TABLETS AT BEDTIME
     Route: 048
  34. FLOMAX [Concomitant]
     Dosage: 0.4 MG, QD
     Route: 048
  35. OMNISCAN [Suspect]
     Indication: AORTOGRAM
     Dates: start: 20030103, end: 20030103
  36. OMNISCAN [Suspect]
     Dates: start: 20060224, end: 20060224
  37. NORVASC [Concomitant]
     Dosage: 10 MG DAILY
  38. NOVOLOG [Concomitant]
     Indication: DIABETES MELLITUS
     Dosage: AS NEEDED
  39. LANTUS [Concomitant]
     Indication: DIABETES MELLITUS

REACTIONS (6)
  - NEPHROGENIC SYSTEMIC FIBROSIS [None]
  - SKIN HYPERTROPHY [None]
  - PAIN [None]
  - MOBILITY DECREASED [None]
  - JOINT RANGE OF MOTION DECREASED [None]
  - SKIN INDURATION [None]
